FAERS Safety Report 13487542 (Version 3)
Quarter: 2017Q3

REPORT INFORMATION
  Report Type: Spontaneous
  Country: US (occurrence: US)
  Receive Date: 20170426
  Receipt Date: 20170830
  Transmission Date: 20171127
  Serious: No
  Sender: FDA-Public Use
  Company Number: US-009507513-1703USA014600

PATIENT
  Sex: Female
  Weight: 95.87 kg

DRUGS (1)
  1. NEXPLANON [Suspect]
     Active Substance: ETONOGESTREL
     Dosage: 1 SINGLE ROD, LEFT ARM
     Route: 059
     Dates: start: 20151022

REACTIONS (1)
  - Implant site pain [Recovered/Resolved]
